FAERS Safety Report 5383729-0 (Version None)
Quarter: 2007Q3

REPORT INFORMATION
  Report Type: 
  Country: None (occurrence: None)
  Receive Date: 20070711
  Receipt Date: 20070629
  Transmission Date: 20080115
  Serious: Yes (Other)
  Sender: FDA-Public Use
  Company Number: PHRM2006FR01953

PATIENT

DRUGS (1)
  1. LEPONEX [Suspect]
     Dosage: 100 MG, BID
     Route: 048
     Dates: start: 20060401

REACTIONS (3)
  - GENERAL PHYSICAL HEALTH DETERIORATION [None]
  - INCOHERENT [None]
  - MENTAL IMPAIRMENT [None]
